FAERS Safety Report 23053250 (Version 4)
Quarter: 2023Q4

REPORT INFORMATION
  Report Type: Spontaneous
  Country: US (occurrence: US)
  Receive Date: 20231011
  Receipt Date: 20231207
  Transmission Date: 20240110
  Serious: Yes (Hospitalization, Other)
  Sender: FDA-Public Use
  Company Number: US-BRISTOL-MYERS SQUIBB COMPANY-2023-143822

PATIENT
  Age: 79 Year
  Sex: Female

DRUGS (1)
  1. REVLIMID [Suspect]
     Active Substance: LENALIDOMIDE
     Indication: Myelodysplastic syndrome
     Dosage: FREQUENCY: TAKE 1 CAPSULE BY MOUTH EVERY DAY ON DAYS 1-21 OF EACH 28 DAY CYCLE (3 WEEKS ON, 1 WEEK O
     Route: 048
     Dates: start: 20231010

REACTIONS (4)
  - Urinary tract infection [Not Recovered/Not Resolved]
  - Fatigue [Unknown]
  - Cardiac failure [Recovered/Resolved]
  - Off label use [Unknown]
